FAERS Safety Report 9476503 (Version 1)
Quarter: 2013Q4

REPORT INFORMATION
  Report Type: Spontaneous
  Country: US (occurrence: None)
  Receive Date: 20130823
  Receipt Date: 20130823
  Transmission Date: 20140711
  Serious: Yes (Other)
  Sender: FDA-Public Use
  Company Number: None

PATIENT
  Age: 71 Year
  Sex: Female
  Weight: 76.38 kg

DRUGS (1)
  1. ERLOTINIB 100 MG TABLET GENENTECH, INC [Suspect]
     Indication: NON-SMALL CELL LUNG CANCER
     Dosage: 100 MG PO DAILY
     Route: 048
     Dates: start: 20130819, end: 20130821

REACTIONS (2)
  - Alanine aminotransferase abnormal [None]
  - Aspartate aminotransferase abnormal [None]
